FAERS Safety Report 9844992 (Version 1)
Quarter: 2014Q1

REPORT INFORMATION
  Report Type: Spontaneous
  Country: IT (occurrence: IT)
  Receive Date: 20140127
  Receipt Date: 20140127
  Transmission Date: 20141002
  Serious: Yes (Hospitalization)
  Sender: FDA-Public Use
  Company Number: IT-MYLANLABS-2014S1001082

PATIENT
  Age: 35 Year
  Sex: Male

DRUGS (9)
  1. TRUVADA [Suspect]
     Indication: HIV INFECTION
     Route: 065
     Dates: start: 201203
  2. PROTEASE INHIBITORS [Suspect]
     Indication: HIV INFECTION
     Route: 065
     Dates: start: 201203
  3. BLEOMYCIN [Suspect]
     Indication: SEMINOMA
     Route: 065
  4. CISPLATIN [Suspect]
     Indication: SEMINOMA
     Route: 065
  5. ETOPOSIDE [Suspect]
     Indication: SEMINOMA
     Route: 065
  6. HEPARIN [Concomitant]
     Indication: THROMBOSIS PROPHYLAXIS
     Dosage: LOW MOLECULAR WEIGHT HEPARIN
     Route: 065
  7. CEFTRIAXONE [Concomitant]
     Indication: HERPES SIMPLEX
     Route: 065
  8. FLUCONAZOLE [Concomitant]
     Indication: HERPES SIMPLEX
     Route: 065
  9. ACICLOVIR [Concomitant]
     Indication: HERPES SIMPLEX
     Route: 065

REACTIONS (2)
  - Streptococcal infection [Recovered/Resolved]
  - Immune system disorder [Recovering/Resolving]
